FAERS Safety Report 24218471 (Version 1)
Quarter: 2024Q3

REPORT INFORMATION
  Report Type: Report from Study
  Country: UY (occurrence: UY)
  Receive Date: 20240816
  Receipt Date: 20240816
  Transmission Date: 20241017
  Serious: Yes (Other)
  Sender: ABBVIE
  Company Number: None

PATIENT
  Age: 49 Year
  Sex: Female

DRUGS (2)
  1. HUMIRA [Suspect]
     Active Substance: ADALIMUMAB
     Indication: Rheumatoid arthritis
     Dosage: FORM STRENGTH: 40 MILLIGRAM
     Route: 058
     Dates: start: 20160629
  2. HUMIRA [Suspect]
     Active Substance: ADALIMUMAB
     Dosage: FORM STRENGTH: 40 MILLIGRAM
     Route: 058
     Dates: start: 202403

REACTIONS (8)
  - Ankle deformity [Not Recovered/Not Resolved]
  - Underweight [Recovering/Resolving]
  - Arthralgia [Not Recovered/Not Resolved]
  - Postoperative wound infection [Recovered/Resolved]
  - Burning sensation [Not Recovered/Not Resolved]
  - Immunodeficiency [Recovering/Resolving]
  - Joint stiffness [Recovering/Resolving]
  - Suture rupture [Not Recovered/Not Resolved]

NARRATIVE: CASE EVENT DATE: 20190901
